FAERS Safety Report 11195046 (Version 1)
Quarter: 2015Q2

REPORT INFORMATION
  Report Type: Spontaneous
  Country: US (occurrence: US)
  Receive Date: 20150617
  Receipt Date: 20150617
  Transmission Date: 20150821
  Serious: Yes (Hospitalization)
  Sender: FDA-Public Use
  Company Number: US-ACCORD-031440

PATIENT
  Age: 62 Year
  Sex: Female

DRUGS (4)
  1. BORTEZOMIB [Concomitant]
     Active Substance: BORTEZOMIB
     Indication: PLASMA CELL MYELOMA
     Dosage: STRENGTH: 2.4 MG
     Route: 042
  2. DEXAMETHASONE. [Concomitant]
     Active Substance: DEXAMETHASONE
     Indication: PLASMA CELL MYELOMA
     Dosage: STRENGTH: 40 MG
  3. AMITRIPTYLINE [Suspect]
     Active Substance: AMITRIPTYLINE
     Indication: NEUROPATHY PERIPHERAL
  4. CYCLOPHOSPHAMIDE/CYCLOPHOSPHAMIDE MONOHYDRATE [Concomitant]
     Indication: PLASMA CELL MYELOMA
     Dosage: STRENGTH: 500 MG
     Route: 042

REACTIONS (5)
  - Agranulocytosis [Recovered/Resolved]
  - Parotitis [Unknown]
  - Off label use [Unknown]
  - Urinary tract infection [Unknown]
  - Eosinophilia [Recovered/Resolved]
